FAERS Safety Report 4595647-6 (Version None)
Quarter: 2005Q1

REPORT INFORMATION
  Report Type: 
  Country: None (occurrence: None)
  Receive Date: 20050302
  Receipt Date: 20050216
  Transmission Date: 20050727
  Serious: Yes (Other)
  Sender: FDA-Public Use
  Company Number: PHBS2005CA02616

PATIENT
  Age: 48 Year
  Sex: Female
  Weight: 89 kg

DRUGS (4)
  1. ZELNORM [Suspect]
     Indication: IRRITABLE BOWEL SYNDROME
     Dosage: 6 MG, BID
     Route: 048
     Dates: start: 20040501
  2. ZELNORM [Suspect]
     Dosage: 6 MG, QD
     Route: 048
     Dates: end: 20040801
  3. RABEPRAZOLE SODIUM [Concomitant]
  4. GLYBERIDE [Concomitant]

REACTIONS (2)
  - BILIARY COLIC [None]
  - CHOLECYSTECTOMY [None]
